FAERS Safety Report 7369771-9 (Version None)
Quarter: 2011Q1

REPORT INFORMATION
  Report Type: 
  Country: None (occurrence: None)
  Receive Date: 20110318
  Receipt Date: 20110318
  Transmission Date: 20110831
  Serious: Yes (Life-Threatening)
  Sender: FDA-Public Use
  Company Number: None

PATIENT
  Sex: Male
  Weight: 92.2 kg

DRUGS (4)
  1. SUTENT [Suspect]
  2. SUTENT [Suspect]
     Indication: COLON CANCER
     Dosage: 37.5 MG DAILY ORAL
     Route: 048
     Dates: start: 20101108, end: 20110307
  3. LOVENOX [Concomitant]
  4. CAPECITABINE [Concomitant]

REACTIONS (2)
  - HAEMORRHAGE INTRACRANIAL [None]
  - RESPIRATORY DISTRESS [None]
